FAERS Safety Report 10934170 (Version 2)
Quarter: 2015Q1

REPORT INFORMATION
  Report Type: Spontaneous
  Country: BR (occurrence: BR)
  Receive Date: 20150320
  Receipt Date: 20150330
  Transmission Date: 20150721
  Serious: Yes (Other)
  Sender: FDA-Public Use
  Company Number: PHHY2015BR031364

PATIENT
  Age: 67 Year
  Sex: Male

DRUGS (3)
  1. CATAFLAM [Suspect]
     Active Substance: DICLOFENAC POTASSIUM
     Indication: THROAT IRRITATION
     Dosage: 200 OR 250 MG DAILY (UNKNOWN DOSE EVERY 6 HOURS)
     Route: 048
  2. CATAFLAM [Suspect]
     Active Substance: DICLOFENAC POTASSIUM
     Indication: OROPHARYNGEAL PAIN
     Dosage: UNKNOWN DOSE 3 TIMES PER DAY
     Route: 048
  3. BUFFERIN [Suspect]
     Active Substance: ASPIRIN
     Indication: PRODUCT USED FOR UNKNOWN INDICATION
     Dosage: UNK
     Route: 065

REACTIONS (5)
  - Ulcer [Recovered/Resolved]
  - Asthenia [Recovered/Resolved]
  - Gastritis [Recovered/Resolved]
  - Malaise [Unknown]
  - Faeces discoloured [Recovered/Resolved]
